FAERS Safety Report 18342907 (Version 1)
Quarter: 2020Q4

REPORT INFORMATION
  Report Type: Spontaneous
  Country: US (occurrence: US)
  Receive Date: 20201002
  Receipt Date: 20201002
  Transmission Date: 20210113
  Serious: No
  Sender: FDA-Public Use
  Company Number: None

PATIENT
  Age: 31 Year
  Weight: 78.75 kg

DRUGS (21)
  1. INSULIN ASPART [Concomitant]
     Active Substance: INSULIN ASPART
  2. OXYCODONE [Concomitant]
     Active Substance: OXYCODONE
  3. KLONOPIN [Concomitant]
     Active Substance: CLONAZEPAM
  4. FAMOTIDINE. [Concomitant]
     Active Substance: FAMOTIDINE
  5. METFORMIN [Concomitant]
     Active Substance: METFORMIN HYDROCHLORIDE
  6. VITAMIN D [Concomitant]
     Active Substance: VITAMIN D NOS
  7. ALBUTEROL. [Concomitant]
     Active Substance: ALBUTEROL
  8. COENZYME Q10 [Concomitant]
     Active Substance: DIETARY SUPPLEMENT\UBIDECARENONE
  9. GABAPENTIN. [Concomitant]
     Active Substance: GABAPENTIN
  10. MEDTRONIC INSULIN PUMP [Concomitant]
     Active Substance: DEVICE
  11. METOPROLOL TARTRATE. [Concomitant]
     Active Substance: METOPROLOL TARTRATE
  12. SPINAL CORD STIMULATOR [Concomitant]
     Active Substance: DEVICE
  13. FREESTYLE LIBRE [Concomitant]
  14. LISINOPRIL. [Concomitant]
     Active Substance: LISINOPRIL
  15. TRAMADOL. [Concomitant]
     Active Substance: TRAMADOL
  16. AMBIEN [Concomitant]
     Active Substance: ZOLPIDEM TARTRATE
  17. VITAMIN B12 [Concomitant]
     Active Substance: CYANOCOBALAMIN
  18. STIMATE [Suspect]
     Active Substance: DESMOPRESSIN ACETATE
     Indication: COAGULOPATHY
     Dosage: ?          QUANTITY:2 SPRAY(S);OTHER ROUTE:INTRANASAL?
     Route: 045
     Dates: start: 20200514, end: 20200618
  19. CYMBALTA [Concomitant]
     Active Substance: DULOXETINE HYDROCHLORIDE
  20. MIRENA [Concomitant]
     Active Substance: LEVONORGESTREL
  21. ADDERALL XR [Concomitant]
     Active Substance: AMPHETAMINE ASPARTATE\AMPHETAMINE SULFATE\DEXTROAMPHETAMINE SACCHARATE\DEXTROAMPHETAMINE SULFATE

REACTIONS (5)
  - Disorientation [None]
  - Seizure [None]
  - Hyponatraemia [None]
  - Recalled product administered [None]
  - Loss of consciousness [None]

NARRATIVE: CASE EVENT DATE: 20200618
